FAERS Safety Report 22331501 (Version 3)
Quarter: 2023Q4

REPORT INFORMATION
  Report Type: Report from Study
  Country: US (occurrence: US)
  Receive Date: 20230517
  Receipt Date: 20231102
  Transmission Date: 20240109
  Serious: Yes (Hospitalization, Other)
  Sender: FDA-Public Use
  Company Number: US-TAKEDA-2022TUS044220

PATIENT
  Age: 15 Year
  Sex: Male

DRUGS (12)
  1. IDURSULFASE [Suspect]
     Active Substance: IDURSULFASE
     Indication: Mucopolysaccharidosis II
     Dosage: 40 MILLIGRAM, 1/WEEK
     Route: 042
  2. IDURSULFASE [Suspect]
     Active Substance: IDURSULFASE
     Dosage: 40 MILLIGRAM, 1/WEEK
     Route: 042
     Dates: start: 202202
  3. IDURSULFASE [Suspect]
     Active Substance: IDURSULFASE
     Dosage: 36 MILLIGRAM, 1/WEEK
     Route: 042
     Dates: start: 20220215
  4. IDURSULFASE [Suspect]
     Active Substance: IDURSULFASE
     Dosage: 36 MILLIGRAM, 1/WEEK
     Route: 042
     Dates: start: 20220217
  5. IDURSULFASE [Suspect]
     Active Substance: IDURSULFASE
     Dosage: 40 MILLIGRAM, 1/WEEK
     Route: 042
     Dates: start: 202208
  6. IDURSULFASE [Suspect]
     Active Substance: IDURSULFASE
     Dosage: 40 MILLIGRAM, 1/WEEK
     Route: 042
     Dates: start: 202210
  7. IDURSULFASE [Suspect]
     Active Substance: IDURSULFASE
     Dosage: 40 MILLIGRAM, 1/WEEK
     Route: 058
  8. IDURSULFASE [Suspect]
     Active Substance: IDURSULFASE
     Dosage: 40 MILLIGRAM, 1/WEEK
     Route: 042
  9. SODIUM CHLORIDE [Concomitant]
     Active Substance: SODIUM CHLORIDE
     Dosage: UNK
     Route: 065
  10. HEPARIN SODIUM [Concomitant]
     Active Substance: HEPARIN SODIUM
     Dosage: UNK
     Route: 065
  11. STERILE WATER [Concomitant]
     Active Substance: WATER
     Dosage: UNK
     Route: 065
  12. SODIUM CHLORIDE [Concomitant]
     Active Substance: SODIUM CHLORIDE
     Dosage: UNK
     Route: 065

REACTIONS (8)
  - Poor venous access [Unknown]
  - Catheter site thrombosis [Unknown]
  - Intracardiac thrombus [Unknown]
  - Illness [Unknown]
  - Device use issue [Unknown]
  - Product availability issue [Unknown]
  - Product dose omission issue [Unknown]
  - Inappropriate schedule of product administration [Unknown]

NARRATIVE: CASE EVENT DATE: 20220628
